FAERS Safety Report 5208326-9 (Version None)
Quarter: 2007Q1

REPORT INFORMATION
  Report Type: 
  Country: None (occurrence: None)
  Receive Date: 20070110
  Receipt Date: 20070110
  Transmission Date: 20070707
  Serious: Yes (Other)
  Sender: FDA-Public Use
  Company Number: None

PATIENT
  Age: 68 Year
  Sex: Male

DRUGS (11)
  1. REVLIMID [Suspect]
     Indication: MULTIPLE MYELOMA
     Dosage: 25MG DAILY 21D/28D PO
     Route: 048
     Dates: start: 20060920, end: 20061229
  2. ACETAMINOPHEN AND OXYCODONE HCL [Concomitant]
  3. DEXAMETHASONE [Concomitant]
  4. AREDIA [Concomitant]
  5. METOPROLOL SUCCINATE [Concomitant]
  6. TERAZOSIN HCL [Concomitant]
  7. FAMOTIDINE [Concomitant]
  8. COLCHICINE [Concomitant]
  9. ACETAZOLAMIDE [Concomitant]
  10. PROCRIT [Concomitant]
  11. ALLOPURINOL SODIUM [Concomitant]

REACTIONS (2)
  - BONE MARROW TOXICITY [None]
  - DRUG TOXICITY [None]
